FAERS Safety Report 17832443 (Version 1)
Quarter: 2020Q2

REPORT INFORMATION
  Report Type: Spontaneous
  Country: NZ (occurrence: GB)
  Receive Date: 20200528
  Receipt Date: 20200528
  Transmission Date: 20200714
  Serious: Yes (Hospitalization, Other)
  Sender: FDA-Public Use
  Company Number: GB-TEVA-2020-GB-1239421

PATIENT
  Age: 24 Year
  Sex: Female

DRUGS (2)
  1. LAMOTRIGINE. [Suspect]
     Active Substance: LAMOTRIGINE
     Indication: BIPOLAR DISORDER
     Route: 065
  2. METHOTREXATE. [Suspect]
     Active Substance: METHOTREXATE
     Route: 048

REACTIONS (7)
  - Toxicity to various agents [Recovering/Resolving]
  - Neutropenia [Recovered/Resolved]
  - Staphylococcal bacteraemia [Unknown]
  - Pancytopenia [Recovering/Resolving]
  - Drug abuse [Recovering/Resolving]
  - Bone marrow failure [Recovered/Resolved]
  - Anaemia megaloblastic [Unknown]
